FAERS Safety Report 11461111 (Version 1)
Quarter: 2015Q3

REPORT INFORMATION
  Report Type: Spontaneous
  Country: US (occurrence: US)
  Receive Date: 20150831
  Receipt Date: 20150831
  Transmission Date: 20151125
  Serious: No
  Sender: FDA-Public Use
  Company Number: US-ELI_LILLY_AND_COMPANY-US201005004654

PATIENT
  Sex: Male

DRUGS (10)
  1. ALLOPURINOL. [Concomitant]
     Active Substance: ALLOPURINOL
     Indication: GOUT
  2. AMOXICLAV [Concomitant]
     Active Substance: AMOXICILLIN\CLAVULANIC ACID
     Indication: SINUSITIS
  3. CYMBALTA [Suspect]
     Active Substance: DULOXETINE HYDROCHLORIDE
     Dosage: 30 MG, DAILY (1/D)
  4. CYMBALTA [Suspect]
     Active Substance: DULOXETINE HYDROCHLORIDE
     Indication: GENERALISED ANXIETY DISORDER
     Dosage: 30 MG, DAILY (1/D)
  5. MESALAMINE. [Concomitant]
     Active Substance: MESALAMINE
     Dosage: 500 MG, 2/D
  6. SYNTHROID [Concomitant]
     Active Substance: LEVOTHYROXINE SODIUM
  7. CYMBALTA [Suspect]
     Active Substance: DULOXETINE HYDROCHLORIDE
     Dosage: 20 MG, UNK
  8. PAXIL [Concomitant]
     Active Substance: PAROXETINE HYDROCHLORIDE
  9. CYMBALTA [Suspect]
     Active Substance: DULOXETINE HYDROCHLORIDE
     Dosage: 20 MG, 2/D
  10. CYMBALTA [Suspect]
     Active Substance: DULOXETINE HYDROCHLORIDE
     Dosage: 60 MG, UNK

REACTIONS (7)
  - Sinusitis [Not Recovered/Not Resolved]
  - Drug ineffective [Not Recovered/Not Resolved]
  - Dizziness [Recovered/Resolved]
  - Asthenia [Recovered/Resolved]
  - Dyspnoea [Unknown]
  - Anxiety [Unknown]
  - Nausea [Recovered/Resolved]

NARRATIVE: CASE EVENT DATE: 2010
